FAERS Safety Report 11748963 (Version 1)
Quarter: 2015Q4

REPORT INFORMATION
  Report Type: Spontaneous
  Country: US (occurrence: US)
  Receive Date: 20151118
  Receipt Date: 20151118
  Transmission Date: 20160304
  Serious: No
  Sender: FDA-Public Use
  Company Number: US-009507513-1511USA006062

PATIENT
  Sex: Female

DRUGS (2)
  1. NUVARING [Suspect]
     Active Substance: ETHINYL ESTRADIOL\ETONOGESTREL
     Indication: CONTRACEPTION
     Dosage: 1 RING/3 WEEKS IN 1 WEEK OUT
     Route: 067
     Dates: start: 201509
  2. PROBIOTICS (UNSPECIFIED) [Concomitant]
     Active Substance: PROBIOTICS NOS

REACTIONS (2)
  - Vaginal discharge [Unknown]
  - Fungal infection [Unknown]

NARRATIVE: CASE EVENT DATE: 2015
